FAERS Safety Report 7621963-7 (Version None)
Quarter: 2011Q3

REPORT INFORMATION
  Report Type: 
  Country: None (occurrence: None)
  Receive Date: 20110720
  Receipt Date: 20101230
  Transmission Date: 20111222
  Serious: Yes (Hospitalization, Other)
  Sender: FDA-Public Use
  Company Number: IT-BAYER-2010-005271

PATIENT
  Age: 84 Year
  Sex: Male

DRUGS (12)
  1. HUMALOG [Concomitant]
     Dosage: 20 IU, UNK
     Route: 058
  2. ASPIRIN [Concomitant]
     Dosage: 75 MG, UNK
     Dates: start: 20101203
  3. ATORVASTATIN CALCIUM [Concomitant]
     Dosage: 20 MG, UNK
     Route: 048
  4. HUMULIN [INSULIN HUMAN] [Concomitant]
     Dosage: 10 IU, UNK
     Route: 058
  5. PLAVIX [Suspect]
     Dosage: UNK
     Dates: start: 20101107
  6. PLAVIX [Suspect]
     Indication: PROPHYLAXIS
     Dosage: 75 MG, QD
     Route: 048
     Dates: start: 20101022, end: 20101105
  7. LASIX [Concomitant]
     Dosage: 500 MG, UNK
     Route: 048
  8. ENOXAPARIN SODIUM [Concomitant]
     Dosage: 6000 IU, UNK
     Dates: start: 20101106
  9. TENORMIN [Concomitant]
     Dosage: 50 MG, UNK
     Route: 048
  10. ASPIRIN [Suspect]
     Indication: PROPHYLAXIS
     Dosage: 100 MG, QD
     Route: 048
     Dates: start: 20101022, end: 20101105
  11. ASPIRIN [Concomitant]
     Dosage: 160 MG, UNK
     Dates: start: 20101112, end: 20101122
  12. NORVASC [Concomitant]
     Dosage: 10 MG, UNK
     Route: 048

REACTIONS (3)
  - MELAENA [None]
  - RECTAL HAEMORRHAGE [None]
  - ANAEMIA [None]
